FAERS Safety Report 5480297-X (Version None)
Quarter: 2007Q3

REPORT INFORMATION
  Report Type: 
  Country: None (occurrence: None)
  Receive Date: 20070913
  Receipt Date: 20070102
  Transmission Date: 20080115
  Serious: Yes (Other)
  Sender: FDA-Public Use
  Company Number: PHEH2006US12531

PATIENT
  Age: 73 Year
  Sex: Female

DRUGS (8)
  1. DIOVAN [Suspect]
     Indication: HYPERTENSION
     Dosage: 80 MG, 40 MG, QD, ORAL
     Route: 048
     Dates: start: 20060927, end: 20061003
  2. DIOVAN [Suspect]
     Indication: HYPERTENSION
     Dosage: 80 MG, 40 MG, QD, ORAL
     Route: 048
     Dates: start: 20061012
  3. NAMENDA [Concomitant]
  4. ASPIRIN [Concomitant]
  5. EVISTA [Concomitant]
  6. SYNTHROID [Concomitant]
  7. REQUIP [Concomitant]
  8. AMBIEN [Concomitant]

REACTIONS (1)
  - HYPOTENSION [None]
